FAERS Safety Report 8132760-0 (Version None)
Quarter: 2012Q1

REPORT INFORMATION
  Report Type: 
  Country: None (occurrence: None)
  Receive Date: 20120213
  Receipt Date: 20120201
  Transmission Date: 20120608
  Serious: Yes (Other)
  Sender: FDA-Public Use
  Company Number: FR-JNJFOC-20120105185

PATIENT
  Age: 24 Year
  Sex: Female
  Weight: 56 kg

DRUGS (5)
  1. CALCIUM CARBONATE [Concomitant]
     Indication: HYPOCALCAEMIA
     Route: 048
     Dates: start: 20081101
  2. IMURAN [Suspect]
     Indication: CROHN'S DISEASE
     Route: 048
     Dates: start: 20070101, end: 20120111
  3. REMICADE [Suspect]
     Indication: CROHN'S DISEASE
     Route: 042
     Dates: start: 20120109, end: 20120111
  4. REMICADE [Suspect]
     Route: 042
     Dates: start: 20080301
  5. CALCIUM CARBONATE [Concomitant]
     Indication: VITAMIN D DEFICIENCY
     Route: 048
     Dates: start: 20081101

REACTIONS (1)
  - MALIGNANT MELANOMA [None]
